FAERS Safety Report 25917564 (Version 1)
Quarter: 2025Q4

REPORT INFORMATION
  Report Type: Spontaneous
  Country: EU (occurrence: EU)
  Receive Date: 20251014
  Receipt Date: 20251014
  Transmission Date: 20260117
  Serious: Yes (Other)
  Sender: ACCORD
  Company Number: None

PATIENT
  Age: 71 Year
  Sex: Male
  Weight: 58 kg

DRUGS (7)
  1. CARBOPLATIN [Suspect]
     Active Substance: CARBOPLATIN
     Indication: Lung adenocarcinoma
     Dates: start: 20250203
  2. PEMETREXED [Suspect]
     Active Substance: PEMETREXED
     Indication: Lung adenocarcinoma
     Dates: start: 20250203, end: 20250203
  3. PEMBROLIZUMAB [Suspect]
     Active Substance: PEMBROLIZUMAB
     Indication: Lung adenocarcinoma
     Dosage: STRENGTH: 25 MG/ML, CONCENTRATE FOR SOLUTION FOR INFUSION
     Dates: start: 20250203, end: 20250203
  4. FILGRASTIM [Concomitant]
     Active Substance: FILGRASTIM
     Indication: Drug toxicity prophylaxis
     Dosage: STRENGTH:  30 MU/0.5 ML, SOLUTION FOR INJECTION OR INFUSION IN A PRE-FILLED SYRINGE
     Dates: start: 20250206, end: 20250210
  5. FOLIC ACID [Concomitant]
     Active Substance: FOLIC ACID
     Indication: Vitamin supplementation
     Dosage: CCD 0.4 MG, TABLET, 1 TO 8 HOURS
     Dates: start: 20250127
  6. PREDNISOLONE [Concomitant]
     Active Substance: PREDNISOLONE
     Indication: Product used for unknown indication
     Dosage: 25 MG MORNING AND EVENING THE DAY BEFORE
  7. LOPERAMIDE [Concomitant]
     Active Substance: LOPERAMIDE
     Indication: Diarrhoea
     Dosage: 2 CAPSULES OF 2 MG AFTER EACH LOOSE STOOL (MAX. 6/DAY)
     Dates: start: 20250203

REACTIONS (1)
  - Hepatitis [Not Recovered/Not Resolved]

NARRATIVE: CASE EVENT DATE: 20250301
